FAERS Safety Report 10419462 (Version 2)
Quarter: 2014Q3

REPORT INFORMATION
  Report Type: Spontaneous
  Country: US (occurrence: None)
  Receive Date: 20140625
  Receipt Date: 20140815
  Transmission Date: 20150326
  Serious: No
  Sender: FDA-Public Use
  Company Number: A-NJ2014-94670

PATIENT
  Age: 58 Year
  Sex: Male

DRUGS (2)
  1. OPSUMIT [Suspect]
     Active Substance: MACITENTAN
     Indication: PULMONARY ARTERIAL HYPERTENSION
     Route: 048
     Dates: start: 20140120
  2. ADCIRCA [Concomitant]
     Active Substance: TADALAFIL

REACTIONS (4)
  - Oedema peripheral [None]
  - Oedema [None]
  - Weight increased [None]
  - Local swelling [None]
